FAERS Safety Report 20979747 (Version 2)
Quarter: 2022Q2

REPORT INFORMATION
  Report Type: Spontaneous
  Country: US (occurrence: US)
  Receive Date: 20220620
  Receipt Date: 20220627
  Transmission Date: 20220721
  Serious: No
  Sender: FDA-Public Use
  Company Number: US-SA-SAC20220616000990

PATIENT
  Sex: Female

DRUGS (13)
  1. DUPIXENT [Suspect]
     Active Substance: DUPILUMAB
     Indication: Dermatitis atopic
     Dosage: 100 MG, QOW
     Route: 058
  2. DUPIXENT [Suspect]
     Active Substance: DUPILUMAB
     Dosage: 200 MG, QOW
     Route: 058
     Dates: start: 202206
  3. DUPIXENT [Suspect]
     Active Substance: DUPILUMAB
     Dosage: UNK
     Dates: start: 20220529
  4. CYCLOSPORINE [Concomitant]
     Active Substance: CYCLOSPORINE
     Dosage: UNK
  5. CYCLOSPORINE [Concomitant]
     Active Substance: CYCLOSPORINE
     Dosage: 25MG
  6. HYDROXYZINE [Concomitant]
     Active Substance: HYDROXYZINE HYDROCHLORIDE
  7. PREDNISOLONE [Concomitant]
     Active Substance: PREDNISOLONE
  8. NEORAL [Concomitant]
     Active Substance: CYCLOSPORINE
  9. DESOXIMETASONE [Concomitant]
     Active Substance: DESOXIMETASONE
  10. GENGRAF [Concomitant]
     Active Substance: CYCLOSPORINE
  11. EUCRISA [Concomitant]
     Active Substance: CRISABOROLE
  12. TRIAMCINOLONE ACETONIDE [Concomitant]
     Active Substance: TRIAMCINOLONE ACETONIDE
  13. CETIRIZINE [Concomitant]
     Active Substance: CETIRIZINE HYDROCHLORIDE

REACTIONS (3)
  - Rash [Unknown]
  - Dermatitis atopic [Not Recovered/Not Resolved]
  - Off label use [Unknown]
